FAERS Safety Report 8916383 (Version 2)
Quarter: 2012Q4

REPORT INFORMATION
  Report Type: 
  Country: KR (occurrence: KR)
  Receive Date: 20121120
  Receipt Date: 20121130
  Transmission Date: 20130627
  Serious: No
  Sender: FDA-Public Use
  Company Number: KR-B.I. PHARMACEUTICALS,INC./RIDGEFIELD-2012-BI-01007GL

PATIENT
  Sex: Male

DRUGS (1)
  1. TELMISARTAN + HYDROCHLOROTHIAZIDE [Suspect]
     Route: 065

REACTIONS (1)
  - Muscle spasms [Unknown]
